FAERS Safety Report 8486759-5 (Version None)
Quarter: 2012Q3

REPORT INFORMATION
  Report Type: 
  Country: None (occurrence: None)
  Receive Date: 20120704
  Receipt Date: 20120621
  Transmission Date: 20120928
  Serious: Yes (Hospitalization)
  Sender: FDA-Public Use
  Company Number: FR-BIOGENIDEC-2011BI043641

PATIENT
  Age: 42 Year
  Sex: Male
  Weight: 85 kg

DRUGS (4)
  1. AVONEX [Suspect]
     Indication: MULTIPLE SCLEROSIS
     Route: 030
     Dates: start: 20030201, end: 20031001
  2. ANTALGIC [Concomitant]
     Indication: INFLUENZA LIKE ILLNESS
  3. AVONEX [Suspect]
     Route: 030
     Dates: start: 20031001, end: 20111030
  4. AVONEX [Suspect]
     Route: 030
     Dates: start: 20111111

REACTIONS (7)
  - PAIN [None]
  - ERYSIPELAS [None]
  - INJECTION SITE ERYTHEMA [None]
  - CHILLS [None]
  - INJECTION SITE INDURATION [None]
  - ABSCESS [None]
  - VOMITING [None]
